FAERS Safety Report 7532183-9 (Version None)
Quarter: 2011Q2

REPORT INFORMATION
  Report Type: 
  Country: None (occurrence: None)
  Receive Date: 20110608
  Receipt Date: 20110524
  Transmission Date: 20111010
  Serious: No
  Sender: FDA-Public Use
  Company Number: US-B.I. PHARMACEUTICALS,INC./RIDGEFIELD-2011-BP-09484BP

PATIENT
  Sex: Female
  Weight: 70.8 kg

DRUGS (9)
  1. MIRAPEX [Suspect]
     Dosage: 1.5 MG
     Route: 048
     Dates: start: 20110101, end: 20110201
  2. MIRAPEX [Suspect]
     Indication: PARKINSON'S DISEASE
     Dosage: 0.75 MG
     Route: 048
     Dates: start: 20110101, end: 20110101
  3. MIRAPEX [Suspect]
     Dosage: 3 MG
     Route: 048
     Dates: start: 20110215, end: 20110511
  4. MIRAPEX [Suspect]
     Dosage: 4.5 MG
     Route: 048
     Dates: start: 20110301
  5. REMERON [Concomitant]
  6. LORAZEPAM [Concomitant]
  7. NAMENDA [Concomitant]
     Indication: MEMORY IMPAIRMENT
  8. MIRTAZAPIN [Concomitant]
     Indication: MEMORY IMPAIRMENT
  9. EXELON [Concomitant]
     Indication: MEMORY IMPAIRMENT

REACTIONS (1)
  - DRUG INEFFECTIVE [None]
